FAERS Safety Report 23144294 (Version 1)
Quarter: 2023Q4

REPORT INFORMATION
  Report Type: Spontaneous
  Country: US (occurrence: US)
  Receive Date: 20231103
  Receipt Date: 20231103
  Transmission Date: 20240110
  Serious: No
  Sender: FDA-Public Use
  Company Number: US-009507513-2310USA003386

PATIENT
  Age: 35 Year
  Sex: Female

DRUGS (4)
  1. NOXAFIL [Suspect]
     Active Substance: POSACONAZOLE
     Indication: Infection prophylaxis
     Dosage: UNK
     Route: 048
  2. MEROPENEM [Concomitant]
     Active Substance: MEROPENEM
  3. DOXYCYCLINE [Concomitant]
     Active Substance: DOXYCYCLINE
  4. VALACYCLOVIR [Concomitant]
     Active Substance: VALACYCLOVIR HYDROCHLORIDE

REACTIONS (1)
  - Product use in unapproved indication [Unknown]
